FAERS Safety Report 20503924 (Version 1)
Quarter: 2022Q1

REPORT INFORMATION
  Report Type: Spontaneous
  Country: US (occurrence: US)
  Receive Date: 20220222
  Receipt Date: 20220222
  Transmission Date: 20220424
  Serious: No
  Sender: FDA-Public Use
  Company Number: US-PFIZER INC-202101638295

PATIENT
  Age: 71 Year
  Sex: Female

DRUGS (2)
  1. XELJANZ XR [Suspect]
     Active Substance: TOFACITINIB CITRATE
     Dosage: 11 MG
     Dates: start: 20211010
  2. XELJANZ XR [Suspect]
     Active Substance: TOFACITINIB CITRATE
     Dosage: 11 MG
     Dates: start: 20211103

REACTIONS (7)
  - Arthralgia [Unknown]
  - Dizziness [Unknown]
  - Fibromyalgia [Unknown]
  - Headache [Unknown]
  - Neck pain [Unknown]
  - Nerve compression [Unknown]
  - Osteopenia [Unknown]
